FAERS Safety Report 9313801 (Version 4)
Quarter: 2013Q3

REPORT INFORMATION
  Report Type: Spontaneous
  Country: US (occurrence: US)
  Receive Date: 20130529
  Receipt Date: 20130930
  Transmission Date: 20140515
  Serious: Yes (Hospitalization)
  Sender: FDA-Public Use
  Company Number: US-BIOGENIDEC-2013BI046142

PATIENT
  Age: 45 Year
  Sex: Female

DRUGS (4)
  1. TYSABRI [Suspect]
     Indication: MULTIPLE SCLEROSIS
     Route: 042
     Dates: start: 20130219
  2. TOVIAZ [Concomitant]
     Indication: MICTURITION URGENCY
     Route: 048
  3. TOVIAZ [Concomitant]
     Indication: POLLAKIURIA
     Route: 048
  4. TOVIAZ [Concomitant]
     Indication: URINARY INCONTINENCE
     Route: 048

REACTIONS (11)
  - Multiple sclerosis relapse [Recovered/Resolved]
  - Urinary tract infection [Recovered/Resolved]
  - Constipation [Recovered/Resolved]
  - Micturition urgency [Recovered/Resolved]
  - Cystitis [Recovered/Resolved]
  - Faecaloma [Recovered/Resolved]
  - Faecal incontinence [Recovered/Resolved]
  - Urinary incontinence [Recovered/Resolved]
  - Temperature intolerance [Not Recovered/Not Resolved]
  - Mobility decreased [Not Recovered/Not Resolved]
  - Sensation of heaviness [Not Recovered/Not Resolved]
